FAERS Safety Report 24846180 (Version 2)
Quarter: 2025Q1

REPORT INFORMATION
  Report Type: Spontaneous
  Country: US (occurrence: US)
  Receive Date: 20250115
  Receipt Date: 20250313
  Transmission Date: 20250408
  Serious: Yes (Disabling)
  Sender: SANOFI AVENTIS
  Company Number: US-SA-2025SA012002

PATIENT
  Sex: Female

DRUGS (24)
  1. AUBAGIO [Suspect]
     Active Substance: TERIFLUNOMIDE
     Indication: Multiple sclerosis
     Dosage: 1DF,QD
     Route: 048
  2. ALBUTEROL [Concomitant]
     Active Substance: ALBUTEROL
  3. BACLOFEN [Concomitant]
     Active Substance: BACLOFEN
  4. METFORMIN HYDROCHLORIDE [Concomitant]
     Active Substance: METFORMIN HYDROCHLORIDE
  5. ATORVASTATIN [Concomitant]
     Active Substance: ATORVASTATIN
  6. AZELASTINE [Concomitant]
     Active Substance: AZELASTINE
  7. BENAZEPRIL [Concomitant]
     Active Substance: BENAZEPRIL HYDROCHLORIDE
  8. CETIRIZINE [Concomitant]
     Active Substance: CETIRIZINE HYDROCHLORIDE
  9. MAGNESIUM [Concomitant]
     Active Substance: MAGNESIUM
  10. VITAMINS NOS [Concomitant]
     Active Substance: VITAMINS
  11. AZATHIOPRINE [Concomitant]
     Active Substance: AZATHIOPRINE
  12. PREDNISONE [Concomitant]
     Active Substance: PREDNISONE
  13. ASPIRIN [Concomitant]
     Active Substance: ASPIRIN
  14. BACLOFEN [Concomitant]
     Active Substance: BACLOFEN
  15. BEVESPI AEROSPHERE [Concomitant]
     Active Substance: FORMOTEROL FUMARATE\GLYCOPYRROLATE
  16. BEVESPI AEROSPHERE [Concomitant]
     Active Substance: FORMOTEROL FUMARATE\GLYCOPYRROLATE
  17. CYCLOBENZAPRINE HYDROCHLORIDE [Concomitant]
     Active Substance: CYCLOBENZAPRINE HYDROCHLORIDE
  18. FLUTICASONE [Concomitant]
     Active Substance: FLUTICASONE
  19. HYDROCHLOROTHIAZIDE [Concomitant]
     Active Substance: HYDROCHLOROTHIAZIDE
  20. LIPITOR [Concomitant]
     Active Substance: ATORVASTATIN CALCIUM
  21. OMEPRAZOLE [Concomitant]
     Active Substance: OMEPRAZOLE
  22. SERTRALINE HYDROCHLORIDE [Concomitant]
     Active Substance: SERTRALINE HYDROCHLORIDE
  23. VENTOLIN HFA [Concomitant]
     Active Substance: ALBUTEROL SULFATE
  24. VITAMIN D3 [Concomitant]
     Active Substance: CHOLECALCIFEROL

REACTIONS (7)
  - Tremor [Not Recovered/Not Resolved]
  - Gait disturbance [Not Recovered/Not Resolved]
  - Visual impairment [Not Recovered/Not Resolved]
  - Somnolence [Not Recovered/Not Resolved]
  - Iron deficiency [Not Recovered/Not Resolved]
  - Dysphagia [Not Recovered/Not Resolved]
  - Hypoaesthesia [Not Recovered/Not Resolved]
